FAERS Safety Report 24127105 (Version 1)
Quarter: 2024Q3

REPORT INFORMATION
  Report Type: Report from Study
  Country: US (occurrence: US)
  Receive Date: 20240723
  Receipt Date: 20240723
  Transmission Date: 20241017
  Serious: No
  Sender: VANDA PHARMACEUTICALS
  Company Number: US-VANDA PHARMACEUTICALS, INC-2024TASUS007297

PATIENT
  Age: 61 Year
  Sex: Female

DRUGS (1)
  1. HETLIOZ [Interacting]
     Active Substance: TASIMELTEON
     Indication: Product used for unknown indication
     Dosage: 20 MILLIGRAM, QHS, EVERY 24 HOURS
     Route: 065

REACTIONS (1)
  - Drug interaction [Unknown]

NARRATIVE: CASE EVENT DATE: 20240517
